FAERS Safety Report 7483489-3 (Version None)
Quarter: 2011Q2

REPORT INFORMATION
  Report Type: 
  Country: None (occurrence: None)
  Receive Date: 20110513
  Receipt Date: 20110513
  Transmission Date: 20111010
  Serious: Yes (Hospitalization)
  Sender: FDA-Public Use
  Company Number: None

PATIENT
  Age: 59 Year
  Sex: Male
  Weight: 97 kg

DRUGS (2)
  1. LISINOPRIL [Suspect]
     Indication: HYPERTENSION
     Dosage: 40 MG EVERY DAY PO
     Route: 048
     Dates: start: 20101013, end: 20110329
  2. HYDROMORPHONE HCL [Suspect]
     Indication: PAIN
     Dosage: 1 MG PRN IV
     Route: 042
     Dates: start: 20110327, end: 20110329

REACTIONS (2)
  - CONSTIPATION [None]
  - ANGIOEDEMA [None]
